FAERS Safety Report 9014680 (Version 1)
Quarter: 2013Q1

REPORT INFORMATION
  Report Type: Spontaneous
  Country: US (occurrence: US)
  Receive Date: 20130115
  Receipt Date: 20130115
  Transmission Date: 20140127
  Serious: Yes (Disabling)
  Sender: FDA-Public Use
  Company Number: US-PFIZER INC-2013016356

PATIENT
  Age: 61 Year
  Sex: Female
  Weight: 131 kg

DRUGS (1)
  1. PROTONIX [Suspect]
     Indication: GASTROINTESTINAL HYPERMOTILITY
     Dosage: 40 MG, DAILY

REACTIONS (3)
  - Accident [Unknown]
  - Joint injury [Unknown]
  - Off label use [Unknown]
